FAERS Safety Report 6095752-1 (Version None)
Quarter: 2009Q1

REPORT INFORMATION
  Report Type: 
  Country: None (occurrence: None)
  Receive Date: 20090227
  Receipt Date: 20080530
  Transmission Date: 20090719
  Serious: No
  Sender: FDA-Public Use
  Company Number: A0732037A

PATIENT
  Age: 27 Year
  Sex: Female

DRUGS (1)
  1. LAMICTAL [Suspect]
     Indication: DEPRESSION
     Dosage: 100MG AT NIGHT
     Route: 048

REACTIONS (3)
  - ACNE [None]
  - ANXIETY [None]
  - CYST [None]
